FAERS Safety Report 7877806-X (Version None)
Quarter: 2011Q4

REPORT INFORMATION
  Report Type: 
  Country: None (occurrence: None)
  Receive Date: 20111031
  Receipt Date: 20111031
  Transmission Date: 20120403
  Serious: Yes (Other)
  Sender: FDA-Public Use
  Company Number: None

PATIENT
  Age: 56 Year
  Sex: Female
  Weight: 86.182 kg

DRUGS (2)
  1. LEVAQUIN -GENERIC- [Suspect]
     Indication: BRONCHITIS
     Route: 048
     Dates: start: 20101111, end: 20101114
  2. LEVAQUIN -GENERIC- [Suspect]
     Indication: SINUSITIS
     Route: 048
     Dates: start: 20101111, end: 20101114

REACTIONS (6)
  - TENDONITIS [None]
  - JOINT SWELLING [None]
  - ARTHROPATHY [None]
  - JOINT WARMTH [None]
  - ARTHRALGIA [None]
  - ACTIVITIES OF DAILY LIVING IMPAIRED [None]
